FAERS Safety Report 14506382 (Version 1)
Quarter: 2018Q1

REPORT INFORMATION
  Report Type: Spontaneous
  Country: US (occurrence: US)
  Receive Date: 20180208
  Receipt Date: 20180208
  Transmission Date: 20180509
  Serious: No
  Sender: FDA-Public Use
  Company Number: US-RISING PHARMACEUTICALS, INC.-2017RIS00135

PATIENT
  Age: 73 Year
  Sex: Female
  Weight: 63.39 kg

DRUGS (6)
  1. CIPROFLOXACIN. [Suspect]
     Active Substance: CIPROFLOXACIN
     Indication: INFECTION
     Dosage: 1 GTT, 3 TO 4 TIMES PER DAY
     Dates: start: 201704, end: 20170412
  2. UNSPECIFIED MUSCLE RELAXER [Concomitant]
     Active Substance: UNSPECIFIED INGREDIENT
  3. OXYBUTYNIN. [Concomitant]
     Active Substance: OXYBUTYNIN CHLORIDE
  4. BACLOFEN. [Concomitant]
     Active Substance: BACLOFEN
  5. HYDROCODONE [Concomitant]
     Active Substance: HYDROCODONE
  6. GABAPENTIN. [Concomitant]
     Active Substance: GABAPENTIN

REACTIONS (3)
  - Abnormal sensation in eye [Not Recovered/Not Resolved]
  - Foreign body in eye [Recovered/Resolved]
  - Fear [Not Recovered/Not Resolved]

NARRATIVE: CASE EVENT DATE: 201704
